FAERS Safety Report 11304829 (Version 2)
Quarter: 2015Q3

REPORT INFORMATION
  Report Type: Spontaneous
  Country: US (occurrence: US)
  Receive Date: 20150723
  Receipt Date: 20150812
  Transmission Date: 20151125
  Serious: Yes (Death)
  Sender: FDA-Public Use
  Company Number: US-JNJFOC-20150716544

PATIENT
  Sex: Male

DRUGS (10)
  1. METFORMIN [Concomitant]
     Active Substance: METFORMIN HYDROCHLORIDE
  2. GLIPIZIDE. [Concomitant]
     Active Substance: GLIPIZIDE
  3. GABAPENTIN. [Concomitant]
     Active Substance: GABAPENTIN
  4. JANUVIA [Concomitant]
     Active Substance: SITAGLIPTIN PHOSPHATE
  5. ALLOPURINOL. [Concomitant]
     Active Substance: ALLOPURINOL
  6. GEMFIBROZIL. [Concomitant]
     Active Substance: GEMFIBROZIL
  7. WARFARIN [Concomitant]
     Active Substance: WARFARIN
  8. DIGOXIN. [Concomitant]
     Active Substance: DIGOXIN
  9. ACYCLOVIR. [Concomitant]
     Active Substance: ACYCLOVIR
  10. IMBRUVICA [Suspect]
     Active Substance: IBRUTINIB
     Indication: CHRONIC LYMPHOCYTIC LEUKAEMIA
     Route: 048
     Dates: start: 20150528, end: 201505

REACTIONS (2)
  - Death [Fatal]
  - Oedema peripheral [Unknown]

NARRATIVE: CASE EVENT DATE: 2015
